FAERS Safety Report 17858149 (Version 1)
Quarter: 2020Q2

REPORT INFORMATION
  Report Type: Spontaneous
  Country: US (occurrence: US)
  Receive Date: 20200604
  Receipt Date: 20200604
  Transmission Date: 20200714
  Serious: No
  Sender: FDA-Public Use
  Company Number: US-SHIRE-US202018044

PATIENT
  Sex: Male

DRUGS (3)
  1. CALCIUM [Suspect]
     Active Substance: CALCIUM
     Indication: BLOOD CALCIUM DECREASED
     Route: 065
  2. CALCITRIOL. [Suspect]
     Active Substance: CALCITRIOL
     Indication: BLOOD CALCIUM DECREASED
     Route: 065
  3. NATPARA (PARATHYROID HORMONE) [Suspect]
     Active Substance: PARATHYROID HORMONE
     Indication: HYPOPARATHYROIDISM
     Dosage: 50 MICROGRAM, UNKNOWN
     Route: 065

REACTIONS (2)
  - Recalled product [Unknown]
  - Blood calcium decreased [Unknown]
